FAERS Safety Report 9258256 (Version 1)
Quarter: 2013Q2

REPORT INFORMATION
  Report Type: Spontaneous
  Country: US (occurrence: US)
  Receive Date: 20130426
  Receipt Date: 20130426
  Transmission Date: 20140414
  Serious: No
  Sender: FDA-Public Use
  Company Number: US-B.I. PHARMACEUTICALS,INC./RIDGEFIELD-2013-BI-10623BP

PATIENT
  Sex: Male

DRUGS (2)
  1. TRADJENTA [Suspect]
  2. SULFONYLUREA [Concomitant]

REACTIONS (3)
  - Glycosylated haemoglobin increased [Unknown]
  - Blood glucose abnormal [Unknown]
  - Blood glucose abnormal [Unknown]
